FAERS Safety Report 8890383 (Version 4)
Quarter: 2013Q1

REPORT INFORMATION
  Report Type: Spontaneous
  Country: DE (occurrence: DE)
  Receive Date: 20121107
  Receipt Date: 20130222
  Transmission Date: 20140127
  Serious: Yes (Disabling)
  Sender: FDA-Public Use
  Company Number: PHHY2012DE101034

PATIENT
  Age: 67 Year
  Sex: Female
  Weight: 48.6 kg

DRUGS (5)
  1. ZOMETA [Suspect]
     Indication: METASTASES TO BONE
     Dosage: 4MG / 5ML
     Route: 042
     Dates: start: 201012, end: 201204
  2. ASS [Concomitant]
     Dosage: 1 DF PER DAY
  3. SELEN [Concomitant]
     Dosage: 1 DF PER DAY
  4. ROCALTROL [Concomitant]
     Dosage: 1 DF PER DAY
  5. TROPHICARD [Concomitant]
     Dosage: 1 DF, TID

REACTIONS (1)
  - Osteonecrosis of jaw [Not Recovered/Not Resolved]
